FAERS Safety Report 5487586-3 (Version None)
Quarter: 2007Q4

REPORT INFORMATION
  Report Type: 
  Country: None (occurrence: None)
  Receive Date: 20071016
  Receipt Date: 20071008
  Transmission Date: 20080405
  Serious: Yes (Hospitalization)
  Sender: FDA-Public Use
  Company Number: HU-ELI_LILLY_AND_COMPANY-HU200710001821

PATIENT
  Age: 85 Year
  Sex: Female

DRUGS (4)
  1. HUMULIN R [Suspect]
     Indication: DIABETES MELLITUS
     Dosage: 14 IU, EACH MORNING
     Route: 058
     Dates: start: 19970101
  2. HUMULIN R [Suspect]
     Dosage: AT NOON
     Route: 058
     Dates: start: 19970101
  3. HUMULIN R [Suspect]
     Dosage: 16 IU, EACH EVENING
     Route: 058
     Dates: start: 19970101
  4. HUMULIN N [Suspect]
     Indication: DIABETES MELLITUS
     Dosage: 16 IU, DAILY (1/D)
     Route: 058
     Dates: start: 19970101

REACTIONS (2)
  - CATARACT [None]
  - VISUAL DISTURBANCE [None]
